FAERS Safety Report 9938629 (Version 3)
Quarter: 2014Q1

REPORT INFORMATION
  Report Type: Spontaneous
  Country: US (occurrence: US)
  Receive Date: 20140303
  Receipt Date: 20140326
  Transmission Date: 20141002
  Serious: Yes (Other)
  Sender: FDA-Public Use
  Company Number: US-SA-2014SA022936

PATIENT
  Age: 41 Year
  Sex: Male

DRUGS (2)
  1. LANTUS SOLOSTAR [Suspect]
     Indication: TYPE 1 DIABETES MELLITUS
     Dosage: DOSE: 1 TO 50 UNITS
     Route: 051
  2. SOLOSTAR [Suspect]
     Indication: TYPE 1 DIABETES MELLITUS

REACTIONS (3)
  - Renal disorder [Unknown]
  - Blood glucose increased [Unknown]
  - Blood glucose decreased [Unknown]
